FAERS Safety Report 19375398 (Version 7)
Quarter: 2024Q2

REPORT INFORMATION
  Report Type: Spontaneous
  Country: JP (occurrence: JP)
  Receive Date: 20210604
  Receipt Date: 20240404
  Transmission Date: 20240716
  Serious: Yes (Other)
  Sender: FDA-Public Use
  Company Number: JP-BRISTOL-MYERS SQUIBB COMPANY-BMS-2021-036278

PATIENT
  Age: 46 Year
  Sex: Male
  Weight: 60 kg

DRUGS (3)
  1. YERVOY [Suspect]
     Active Substance: IPILIMUMAB
     Indication: Non-small cell lung cancer recurrent
     Dosage: 60 MILLIGRAM
     Route: 041
     Dates: start: 20210303
  2. OPDIVO [Suspect]
     Active Substance: NIVOLUMAB
     Indication: Non-small cell lung cancer recurrent
     Dosage: 360 MILLIGRAM
     Route: 041
     Dates: start: 20210303
  3. ATEZOLIZUMAB [Suspect]
     Active Substance: ATEZOLIZUMAB
     Indication: Non-small cell lung cancer recurrent
     Dates: start: 20220323, end: 20221130

REACTIONS (6)
  - Drug-induced liver injury [Recovered/Resolved]
  - Malignant neoplasm progression [Unknown]
  - Immune-mediated dermatitis [Recovered/Resolved]
  - Thyroid disorder [Unknown]
  - Myositis [Unknown]
  - Enterocolitis [Unknown]

NARRATIVE: CASE EVENT DATE: 20210324
